FAERS Safety Report 7411928-2 (Version None)
Quarter: 2011Q2

REPORT INFORMATION
  Report Type: 
  Country: None (occurrence: None)
  Receive Date: 20110413
  Receipt Date: 20110404
  Transmission Date: 20111010
  Serious: Yes (Other)
  Sender: FDA-Public Use
  Company Number: JP-ASTRAZENECA-2011SE19483

PATIENT
  Age: 52 Year
  Sex: Female

DRUGS (1)
  1. XYLOCAINE INJECTION SYRINGE [Suspect]
     Indication: LOCAL ANAESTHESIA
     Route: 065

REACTIONS (2)
  - BLOOD PRESSURE INCREASED [None]
  - ALTERED STATE OF CONSCIOUSNESS [None]
